FAERS Safety Report 6959700 (Version 3)
Quarter: 2013Q1

REPORT INFORMATION
  Report Type: Spontaneous
  Country: IT (occurrence: None)
  Receive Date: 20090326
  Receipt Date: 20130226
  Transmission Date: 20140127
  Serious: Yes (Death, Hospitalization)
  Sender: FDA-Public Use
  Company Number: 2009000772

PATIENT
  Age: 77 Year
  Sex: Male

DRUGS (8)
  1. TARCEVA (ERLOTINIB HYDROCHLORIDE) TABLET [Suspect]
     Indication: LUNG ADENOCARCINOMA STAGE III
     Dosage: 100 MG, UID/QD, ORAL
     Route: 048
     Dates: start: 20070802
  2. METFORMIN [Suspect]
     Indication: TYPE 2 DIABETES MELLITUS
     Dosage: 500 MG, UID/QD, ORAL
     Route: 048
  3. GLIBENCLAMIDE [Suspect]
     Indication: TYPE 2 DIABETES MELLITUS
     Route: 048
  4. DOXAZOSIN MESYLATE [Concomitant]
  5. OMEPRAZOLE [Concomitant]
  6. PREDNISONE [Concomitant]
  7. FUROSEMIDE (FUROSEMIDE) [Concomitant]
  8. REPAGLINIDE (REPAGLINIDE) [Suspect]

REACTIONS (8)
  - Hepatitis acute [None]
  - Renal failure [None]
  - Lactic acidosis [None]
  - Tachypnoea [None]
  - Delirium [None]
  - Pallor [None]
  - Blood glucose increased [None]
  - General physical health deterioration [None]
